FAERS Safety Report 24524938 (Version 1)
Quarter: 2024Q4

REPORT INFORMATION
  Report Type: Report from Study
  Country: ZA (occurrence: ZA)
  Receive Date: 20241019
  Receipt Date: 20241019
  Transmission Date: 20250115
  Serious: Yes (Death)
  Sender: ABBVIE
  Company Number: ZA-ABBVIE-5969951

PATIENT
  Age: 80 Year
  Sex: Female

DRUGS (2)
  1. OZURDEX [Suspect]
     Active Substance: DEXAMETHASONE
     Indication: Neovascular age-related macular degeneration
     Dosage: TIME INTERVAL: AS NECESSARY: FORM STRENGTH: 0.7 MG, FREQUENCY TEXT: EVERY 4 TO 6 MONTHS
     Route: 050
     Dates: start: 20230721, end: 20240802
  2. OZURDEX [Suspect]
     Active Substance: DEXAMETHASONE
     Indication: Uveitis

REACTIONS (1)
  - Death [Fatal]

NARRATIVE: CASE EVENT DATE: 20240901
